FAERS Safety Report 4937659-6 (Version None)
Quarter: 2006Q1

REPORT INFORMATION
  Report Type: 
  Country: None (occurrence: None)
  Receive Date: 20060309
  Receipt Date: 20051011
  Transmission Date: 20060701
  Serious: Yes (Hospitalization)
  Sender: FDA-Public Use
  Company Number: US-MERCK-0510USA06599

PATIENT
  Age: 56 Year
  Sex: Female
  Weight: 73 kg

DRUGS (16)
  1. VIOXX [Suspect]
     Indication: ARTHRITIS
     Route: 048
     Dates: start: 20010101, end: 20040930
  2. ZOCOR [Concomitant]
     Route: 048
  3. TYLENOL W/ CODEINE NO. 3 [Concomitant]
     Route: 065
  4. TOPROL-XL [Concomitant]
     Route: 065
  5. PROTONIX [Concomitant]
     Route: 065
  6. PRINIVIL [Concomitant]
     Indication: BLOOD PRESSURE
     Route: 048
  7. PLAVIX [Concomitant]
     Route: 065
  8. NORVASC [Concomitant]
     Indication: BLOOD PRESSURE
     Route: 065
  9. NEURONTIN [Concomitant]
     Route: 065
  10. K-DUR 10 [Concomitant]
     Route: 065
  11. HUMULIN [Concomitant]
     Route: 065
  12. INSULIN [Concomitant]
     Route: 065
  13. GLUCOTROL [Concomitant]
     Route: 065
  14. ALDACTAZIDE [Concomitant]
     Indication: BLOOD PRESSURE
     Route: 065
  15. CLIMARA [Concomitant]
     Indication: HORMONE REPLACEMENT THERAPY
     Route: 061
  16. ECOTRIN [Concomitant]
     Indication: ANTICOAGULANT THERAPY
     Route: 065

REACTIONS (2)
  - CEREBROVASCULAR ACCIDENT [None]
  - LETHARGY [None]
